FAERS Safety Report 10738525 (Version 4)
Quarter: 2015Q3

REPORT INFORMATION
  Report Type: Spontaneous
  Country: US (occurrence: US)
  Receive Date: 20150126
  Receipt Date: 20150902
  Transmission Date: 20151125
  Serious: Yes (Hospitalization, Other)
  Sender: FDA-Public Use
  Company Number: US-PFIZER INC-2015031494

PATIENT
  Age: 27 Year
  Sex: Female
  Weight: 85 kg

DRUGS (3)
  1. CYTOTEC [Suspect]
     Active Substance: MISOPROSTOL
     Indication: LABOUR INDUCTION
  2. TYLENOL [Concomitant]
     Active Substance: ACETAMINOPHEN
     Dosage: UNK
     Dates: start: 20040321
  3. CYTOTEC [Suspect]
     Active Substance: MISOPROSTOL
     Indication: INDUCTION OF CERVIX RIPENING
     Dosage: 50 ?G, 2X/DAY
     Route: 067
     Dates: start: 20040322

REACTIONS (3)
  - Product use issue [Unknown]
  - Premature separation of placenta [Unknown]
  - Labour complication [Unknown]

NARRATIVE: CASE EVENT DATE: 20040322
